FAERS Safety Report 11588028 (Version 2)
Quarter: 2015Q4

REPORT INFORMATION
  Report Type: Spontaneous
  Country: US (occurrence: US)
  Receive Date: 20151002
  Receipt Date: 20151013
  Transmission Date: 20160304
  Serious: No
  Sender: FDA-Public Use
  Company Number: US-BRISTOL-MYERS SQUIBB COMPANY-BMS-2015-065194

PATIENT
  Sex: Male

DRUGS (1)
  1. YERVOY [Suspect]
     Active Substance: IPILIMUMAB
     Indication: PRODUCT USED FOR UNKNOWN INDICATION
     Dosage: UNK, Q3WK
     Route: 065

REACTIONS (9)
  - Fatigue [Unknown]
  - Sluggishness [Unknown]
  - Decreased appetite [Unknown]
  - Lacrimation increased [Unknown]
  - Dizziness [Unknown]
  - Diarrhoea [Unknown]
  - Headache [Unknown]
  - Affective disorder [Unknown]
  - Thyroid disorder [Unknown]
